FAERS Safety Report 15741896 (Version 1)
Quarter: 2018Q4

REPORT INFORMATION
  Report Type: Spontaneous
  Country: FR (occurrence: FR)
  Receive Date: 20181219
  Receipt Date: 20181219
  Transmission Date: 20190205
  Serious: Yes (Other)
  Sender: FDA-Public Use
  Company Number: FR-MYLANLABS-2018M1095029

PATIENT
  Age: 31 Year
  Sex: Male
  Weight: 72 kg

DRUGS (2)
  1. PIPERACILLIN AND TAZOBACTAM [Interacting]
     Active Substance: PIPERACILLIN SODIUM\TAZOBACTAM SODIUM
     Indication: FEBRILE BONE MARROW APLASIA
     Dosage: 16 GRAM, QD
     Route: 041
     Dates: start: 20180425, end: 20180428
  2. VANCOMYCINE MYLAN 1 G, POUDRE POUR SOLUTION POUR PERFUSION [Suspect]
     Active Substance: VANCOMYCIN
     Indication: FEBRILE BONE MARROW APLASIA
     Dosage: 2 GRAM, QD,+ DOSE DE CHARGE DE 2 G ? J1
     Route: 041
     Dates: start: 20180425, end: 20180426

REACTIONS (2)
  - Acute kidney injury [Recovering/Resolving]
  - Drug interaction [Unknown]

NARRATIVE: CASE EVENT DATE: 2018
